FAERS Safety Report 18221206 (Version 1)
Quarter: 2020Q3

REPORT INFORMATION
  Report Type: Spontaneous
  Country: US (occurrence: US)
  Receive Date: 20200901
  Receipt Date: 20200901
  Transmission Date: 20201103
  Serious: Yes (Death)
  Sender: FDA-Public Use
  Company Number: None

PATIENT
  Age: 82 Year
  Sex: Female
  Weight: 107 kg

DRUGS (21)
  1. METRONIDAZOLE. [Concomitant]
     Active Substance: METRONIDAZOLE
     Dates: start: 20200819, end: 20200823
  2. ATORVASTATIN [Concomitant]
     Active Substance: ATORVASTATIN
     Dates: start: 20200816, end: 20200820
  3. LIDOCAINE 5% [Concomitant]
     Active Substance: LIDOCAINE
     Dates: start: 20200817, end: 20200821
  4. VASOPRESSIN. [Concomitant]
     Active Substance: VASOPRESSIN
     Dates: start: 20200819, end: 20200824
  5. ASCORBIC ACID. [Concomitant]
     Active Substance: ASCORBIC ACID
     Dates: start: 20200817, end: 20200823
  6. INSULIN [Concomitant]
     Active Substance: INSULIN NOS
     Dates: start: 20200820, end: 20200824
  7. PRECEDEX [Concomitant]
     Active Substance: DEXMEDETOMIDINE HYDROCHLORIDE
     Dates: start: 20200816, end: 20200824
  8. HYDROCORTISONE. [Concomitant]
     Active Substance: HYDROCORTISONE
     Dates: start: 20200819, end: 20200821
  9. FAMOTIDINE. [Concomitant]
     Active Substance: FAMOTIDINE
     Dates: start: 20200816, end: 20200823
  10. THIAMINE. [Concomitant]
     Active Substance: THIAMINE
     Dates: start: 20200819, end: 20200823
  11. REMDESIVIR. [Suspect]
     Active Substance: REMDESIVIR
     Indication: COVID-19
     Dates: start: 20200816, end: 20200822
  12. CEFEPIME [Concomitant]
     Active Substance: CEFEPIME HYDROCHLORIDE
     Dates: start: 20200819, end: 20200823
  13. DEXAMETHASONE. [Concomitant]
     Active Substance: DEXAMETHASONE
     Dates: start: 20200815, end: 20200819
  14. ENOXAPARIN [Concomitant]
     Active Substance: ENOXAPARIN
     Dates: start: 20200816, end: 20200822
  15. MIDAZOLAM. [Concomitant]
     Active Substance: MIDAZOLAM
     Dates: start: 20200820, end: 20200824
  16. DOCUSATE SODIUM. [Concomitant]
     Active Substance: DOCUSATE SODIUM
     Dates: start: 20200817, end: 20200819
  17. DORNASE ALPHA NEBULIZER [Concomitant]
     Dates: start: 20200820, end: 20200823
  18. ZINC. [Concomitant]
     Active Substance: ZINC
     Dates: start: 20200817, end: 20200823
  19. FLUCONAZOLE. [Concomitant]
     Active Substance: FLUCONAZOLE
     Dates: start: 20200821, end: 20200823
  20. ALBUTEROL. [Concomitant]
     Active Substance: ALBUTEROL
     Dates: start: 20200816, end: 20200820
  21. NOREPINEPHRINE. [Concomitant]
     Active Substance: NOREPINEPHRINE
     Dates: start: 20200818, end: 20200824

REACTIONS (8)
  - Cardiopulmonary failure [None]
  - Thrombocytopenia [None]
  - Shock [None]
  - Haemothorax [None]
  - Acute kidney injury [None]
  - Fall [None]
  - Rib fracture [None]
  - Therapy cessation [None]

NARRATIVE: CASE EVENT DATE: 20200824
